FAERS Safety Report 23167392 (Version 1)
Quarter: 2023Q4

REPORT INFORMATION
  Report Type: Spontaneous
  Country: US (occurrence: US)
  Receive Date: 20231109
  Receipt Date: 20231109
  Transmission Date: 20240110
  Serious: Yes (Other)
  Sender: FDA-Public Use
  Company Number: US-RADIUS HEALTH, INC.-2023US005654

PATIENT
  Sex: Female

DRUGS (1)
  1. TYMLOS [Suspect]
     Active Substance: ABALOPARATIDE
     Indication: Back pain
     Dosage: 80 MICROGRAM, QD
     Route: 058

REACTIONS (3)
  - Cardiac arrest [Unknown]
  - Dyspnoea [Unknown]
  - Product use in unapproved indication [Unknown]
